FAERS Safety Report 9988349 (Version 2)
Quarter: 2014Q1

REPORT INFORMATION
  Report Type: Spontaneous
  Country: US (occurrence: US)
  Receive Date: 20140310
  Receipt Date: 20140318
  Transmission Date: 20141002
  Serious: Yes (Hospitalization, Other)
  Sender: FDA-Public Use
  Company Number: US-ROCHE-1357749

PATIENT
  Age: 71 Year
  Sex: Male
  Weight: 90.8 kg

DRUGS (17)
  1. XOLAIR [Suspect]
     Indication: ASTHMA
     Route: 058
     Dates: start: 20121025
  2. XOLAIR [Suspect]
     Indication: CHRONIC OBSTRUCTIVE PULMONARY DISEASE
  3. XOLAIR [Suspect]
     Indication: RHINITIS ALLERGIC
  4. PRILOSEC [Concomitant]
     Indication: GASTROOESOPHAGEAL REFLUX DISEASE
  5. SINGULAIR [Concomitant]
  6. PRAVASTATIN [Concomitant]
     Indication: BLOOD CHOLESTEROL INCREASED
  7. SPIRIVA [Concomitant]
  8. XOPENEX HFA [Concomitant]
  9. ASPIRIN [Concomitant]
  10. FLUTICASONE [Concomitant]
     Route: 045
  11. SYMBICORT [Concomitant]
     Dosage: 140/4.5
     Route: 055
  12. FISH OIL [Concomitant]
  13. EPIPEN [Concomitant]
  14. THEOPHYLLINE [Concomitant]
     Indication: CHRONIC OBSTRUCTIVE PULMONARY DISEASE
     Route: 048
  15. THEOPHYLLINE [Concomitant]
     Indication: ASTHMA
  16. PREDNISONE [Concomitant]
     Route: 065
     Dates: start: 20131106
  17. PREDNISONE [Concomitant]
     Dosage: TAPPERING
     Route: 065
     Dates: start: 20140311

REACTIONS (1)
  - Pulmonary mass [Unknown]
